FAERS Safety Report 4528878-1 (Version None)
Quarter: 2004Q4

REPORT INFORMATION
  Report Type: 
  Country: None (occurrence: None)
  Receive Date: 20041214
  Receipt Date: 20041129
  Transmission Date: 20050328
  Serious: Yes (Other)
  Sender: FDA-Public Use
  Company Number: 2004-DE-06008GD

PATIENT
  Age: 6 Month
  Sex: Female

DRUGS (4)
  1. NEVIRAPINE (NEVIRAPINE) [Suspect]
     Route: 015
  2. LAMIVUDINE [Suspect]
     Route: 015
  3. STAVUDINE (STAVUDINE) [Suspect]
     Route: 015
  4. ZIDOVUDINE [Suspect]

REACTIONS (5)
  - DEVELOPMENTAL COORDINATION DISORDER [None]
  - DRUG TOXICITY [None]
  - HYPERLACTACIDAEMIA [None]
  - MUSCLE SPASTICITY [None]
  - PSYCHOMOTOR SKILLS IMPAIRED [None]
